FAERS Safety Report 13669181 (Version 5)
Quarter: 2019Q1

REPORT INFORMATION
  Report Type: Spontaneous
  Country: US (occurrence: US)
  Receive Date: 20170620
  Receipt Date: 20190102
  Transmission Date: 20190417
  Serious: No
  Sender: FDA-Public Use
  Company Number: US-PFIZER INC-2017264563

PATIENT
  Age: 49 Year
  Sex: Female

DRUGS (7)
  1. MARIJUANA [Concomitant]
     Active Substance: CANNABIS SATIVA SUBSP. INDICA TOP
     Indication: PAIN
     Dosage: UNK, (IV3000)
     Route: 042
  2. LYRICA [Suspect]
     Active Substance: PREGABALIN
     Dosage: UNK UNK, 3X/DAY
     Route: 048
  3. DIPHENOXYLATE/ATROPINE [Concomitant]
     Active Substance: ATROPINE\DIPHENOXYLATE
     Dosage: UNK UNK, AS NEEDED [2.5 MG]
  4. GLIPIZIDE. [Concomitant]
     Active Substance: GLIPIZIDE
     Dosage: 10 MG, DAILY, (1 A DAY)
  5. PROAIR HFA [Concomitant]
     Active Substance: ALBUTEROL SULFATE
     Dosage: UNK UNK, AS NEEDED  (EVERY 4 HOURS)
  6. MAGNESIUM OXIDE. [Concomitant]
     Active Substance: MAGNESIUM OXIDE
     Dosage: 12 DF, DAILY, (400 MG 12 A DAY)
  7. LYRICA [Suspect]
     Active Substance: PREGABALIN
     Indication: IMPAIRED GASTRIC EMPTYING
     Dosage: 50 MG, 2X/DAY
     Dates: start: 20170512

REACTIONS (3)
  - Product use in unapproved indication [Unknown]
  - Nasopharyngitis [Unknown]
  - Pollakiuria [Recovering/Resolving]

NARRATIVE: CASE EVENT DATE: 20170512
